FAERS Safety Report 14689307 (Version 1)
Quarter: 2018Q1

REPORT INFORMATION
  Report Type: Spontaneous
  Country: FR (occurrence: FR)
  Receive Date: 20180328
  Receipt Date: 20180328
  Transmission Date: 20180509
  Serious: Yes (Hospitalization, Other)
  Sender: FDA-Public Use
  Company Number: FR-OTSUKA-2018_007234

PATIENT
  Age: 15 Year
  Sex: Female
  Weight: 82.2 kg

DRUGS (5)
  1. RISPERIDONE. [Concomitant]
     Active Substance: RISPERIDONE
     Indication: PRODUCT USED FOR UNKNOWN INDICATION
     Dosage: UNK
     Route: 065
  2. NEULEPTIL [Concomitant]
     Active Substance: PERICIAZINE
     Indication: SCHIZOPHRENIA
     Dosage: 55 GTT, QD (55 DRP)
     Route: 048
     Dates: start: 201706, end: 20180221
  3. LOXAPINE BASE [Concomitant]
     Indication: PRODUCT USED FOR UNKNOWN INDICATION
     Dosage: UNK
     Route: 065
  4. DIAZEPAM. [Concomitant]
     Active Substance: DIAZEPAM
     Indication: PRODUCT USED FOR UNKNOWN INDICATION
     Dosage: UNK
     Route: 065
  5. ABILIFY MAINTENA [Suspect]
     Active Substance: ARIPIPRAZOLE
     Indication: SCHIZOPHRENIA
     Dosage: 400 MG, QM
     Route: 030
     Dates: start: 20171128

REACTIONS (3)
  - Hepatitis [Not Recovered/Not Resolved]
  - Drug administered to patient of inappropriate age [Unknown]
  - Vomiting projectile [Not Recovered/Not Resolved]

NARRATIVE: CASE EVENT DATE: 201801
